FAERS Safety Report 8280863-2 (Version None)
Quarter: 2012Q2

REPORT INFORMATION
  Report Type: 
  Country: None (occurrence: None)
  Receive Date: 20120412
  Receipt Date: 20120403
  Transmission Date: 20120825
  Serious: Yes (Other)
  Sender: FDA-Public Use
  Company Number: US-ABBOTT-12P-163-0921680-00

PATIENT
  Age: 57 Year
  Sex: Male

DRUGS (5)
  1. WELLBUTRIN [Concomitant]
     Indication: DEPRESSION
  2. HUMIRA [Suspect]
     Indication: CROHN'S DISEASE
     Dates: start: 20100101
  3. ABILIFY [Concomitant]
     Indication: DEPRESSION
  4. LOSARTAN POTASSIUM [Concomitant]
     Indication: BLOOD PRESSURE
  5. NEXIUM [Concomitant]
     Indication: GASTRIC DISORDER

REACTIONS (9)
  - ABDOMINAL HERNIA [None]
  - NAUSEA [None]
  - POLYP [None]
  - DIARRHOEA [None]
  - MUSCLE SPASMS [None]
  - GASTROOESOPHAGEAL REFLUX DISEASE [None]
  - DIZZINESS [None]
  - HAEMORRHOIDS [None]
  - ABDOMINAL PAIN [None]
